FAERS Safety Report 6040681-2 (Version None)
Quarter: 2009Q1

REPORT INFORMATION
  Report Type: 
  Country: None (occurrence: None)
  Receive Date: 20090116
  Receipt Date: 20080505
  Transmission Date: 20090719
  Serious: No
  Sender: FDA-Public Use
  Company Number: US-BRISTOL-MYERS SQUIBB COMPANY-14175830

PATIENT
  Age: 12 Year
  Sex: Male
  Weight: 49 kg

DRUGS (3)
  1. ABILIFY [Suspect]
     Indication: AFFECTIVE DISORDER
     Dosage: STARTED AT DOSE OF: 5MG/D  INCREASED TO 10MG/D FROM APR-2008
     Dates: start: 20071001
  2. ABILIFY [Suspect]
     Indication: OBSESSIVE-COMPULSIVE DISORDER
     Dosage: STARTED AT DOSE OF: 5MG/D  INCREASED TO 10MG/D FROM APR-2008
     Dates: start: 20071001
  3. ZOLOFT [Concomitant]

REACTIONS (1)
  - DRUG ERUPTION [None]
